FAERS Safety Report 9501251 (Version 2)
Quarter: 2013Q3

REPORT INFORMATION
  Report Type: Report from Study
  Country: US (occurrence: US)
  Receive Date: 20130905
  Receipt Date: 20130905
  Transmission Date: 20140515
  Serious: Yes (Hospitalization)
  Sender: FDA-Public Use
  Company Number: US-ASTRAZENECA-2013SE54811

PATIENT
  Age: 25645 Day
  Sex: Female

DRUGS (9)
  1. AZD6140 [Suspect]
     Indication: CORONARY ARTERY DISEASE
     Route: 048
     Dates: start: 20121002, end: 20130714
  2. LISINOPRIL [Concomitant]
     Indication: HYPERTENSION
     Route: 048
  3. METOPROLOL [Concomitant]
     Indication: CORONARY ARTERY DISEASE
     Route: 048
  4. LASIX [Concomitant]
     Indication: PULMONARY HYPERTENSION
     Route: 048
  5. IMDUR [Concomitant]
     Indication: CORONARY ARTERY DISEASE
     Route: 048
  6. GLIPIZIDE [Concomitant]
     Indication: TYPE 2 DIABETES MELLITUS
     Route: 048
  7. LIPITOR [Concomitant]
     Indication: BLOOD CHOLESTEROL
     Route: 048
  8. K-LOR [Concomitant]
     Indication: MINERAL SUPPLEMENTATION
     Route: 048
  9. ASA [Concomitant]
     Indication: CORONARY ARTERY DISEASE
     Route: 048

REACTIONS (1)
  - Gastroenteritis [Not Recovered/Not Resolved]
